FAERS Safety Report 4635053-9 (Version None)
Quarter: 2005Q2

REPORT INFORMATION
  Report Type: 
  Country: None (occurrence: None)
  Receive Date: 20050414
  Receipt Date: 20050214
  Transmission Date: 20051028
  Serious: Yes (Life-Threatening)
  Sender: FDA-Public Use
  Company Number: US-ROCHE-395408

PATIENT
  Age: 58 Year
  Sex: Female
  Weight: 61.7 kg

DRUGS (2)
  1. PEGASYS [Suspect]
     Indication: HEPATITIS C
     Route: 030
     Dates: end: 20050215
  2. COPEGUS [Concomitant]
     Indication: HEPATITIS C
     Route: 048
     Dates: end: 20050215

REACTIONS (1)
  - CARDIAC FAILURE CONGESTIVE [None]
